FAERS Safety Report 15378093 (Version 3)
Quarter: 2018Q4

REPORT INFORMATION
  Report Type: Spontaneous
  Country: US (occurrence: US)
  Receive Date: 20180913
  Receipt Date: 20181221
  Transmission Date: 20190204
  Serious: No
  Sender: FDA-Public Use
  Company Number: US-VERTEX PHARMACEUTICALS-2018-006533

PATIENT
  Age: 2 Year
  Sex: Female
  Weight: 12 kg

DRUGS (2)
  1. KALYDECO [Suspect]
     Active Substance: IVACAFTOR
     Indication: CYSTIC FIBROSIS
     Dosage: 50 MG, BID
     Route: 048
     Dates: start: 20180821
  2. CEFDINIR. [Suspect]
     Active Substance: CEFDINIR
     Indication: CELLULITIS
     Dosage: UNK
     Route: 065
     Dates: start: 20180831

REACTIONS (3)
  - Abdominal discomfort [Unknown]
  - Dermatitis diaper [Not Recovered/Not Resolved]
  - Periorbital cellulitis [Not Recovered/Not Resolved]

NARRATIVE: CASE EVENT DATE: 20180831
